FAERS Safety Report 7733612-8 (Version None)
Quarter: 2011Q3

REPORT INFORMATION
  Report Type: 
  Country: None (occurrence: None)
  Receive Date: 20110907
  Receipt Date: 20110830
  Transmission Date: 20111222
  Serious: Yes (Hospitalization)
  Sender: FDA-Public Use
  Company Number: JP-BRISTOL-MYERS SQUIBB COMPANY-15853427

PATIENT
  Age: 80 Year
  Sex: Female

DRUGS (2)
  1. HYDREA [Suspect]
  2. VALACICLOVIR [Suspect]
     Dosage: ADJUSTED TO HER RENAL FUNCTION AND ORALLY STARTED AT A DOSAGE OF 1000 MG DAILY

REACTIONS (7)
  - BONE MARROW FAILURE [None]
  - COMA [None]
  - DECREASED APPETITE [None]
  - HAEMORRHAGIC DIATHESIS [None]
  - HERPES ZOSTER [None]
  - RENAL FAILURE ACUTE [None]
  - VOMITING [None]
